FAERS Safety Report 10253546 (Version 1)
Quarter: 2014Q2

REPORT INFORMATION
  Report Type: Spontaneous
  Country: GB (occurrence: GB)
  Receive Date: 20140623
  Receipt Date: 20140623
  Transmission Date: 20141212
  Serious: Yes (Life-Threatening, Hospitalization)
  Sender: FDA-Public Use
  Company Number: GB-WATSON-2014-13176

PATIENT
  Age: 58 Year
  Sex: Female
  Weight: 45 kg

DRUGS (3)
  1. LAMOTRIGINE (UNKNOWN) [Suspect]
     Indication: EPILEPSY
     Dosage: 100 MG, BID
     Route: 048
     Dates: start: 20131029
  2. PHENYTOIN (AMALLC) [Suspect]
     Indication: EPILEPSY
     Dosage: 100 MG, TID
     Route: 048
     Dates: end: 20140520
  3. PERAMPANEL [Suspect]
     Indication: EPILEPSY
     Dosage: 2MG ONCE DAILY FOR 2 WEEKS, INCREASING BY 2MG EVERY 2 WEEKS TO 6MG ONCE DAILY
     Route: 048
     Dates: start: 20140416, end: 20140520

REACTIONS (4)
  - Unresponsive to stimuli [Not Recovered/Not Resolved]
  - Intestinal dilatation [Not Recovered/Not Resolved]
  - Dyspnoea [Not Recovered/Not Resolved]
  - Intentional overdose [Not Recovered/Not Resolved]
